FAERS Safety Report 7052799-6 (Version None)
Quarter: 2010Q4

REPORT INFORMATION
  Report Type: 
  Country: None (occurrence: None)
  Receive Date: 20101014
  Receipt Date: 20101007
  Transmission Date: 20110411
  Serious: Yes (Hospitalization, Other)
  Sender: FDA-Public Use
  Company Number: WAES 0910USA03874

PATIENT
  Age: 60 Year
  Sex: Male
  Weight: 93.8946 kg

DRUGS (5)
  1. VYTORIN [Suspect]
     Indication: ACUTE CORONARY SYNDROME
     Dosage: 10-40 MG/DAILY/PO
     Route: 048
     Dates: start: 20070112
  2. PLACEBO (UNSPECIFIED) UNK [Suspect]
     Indication: ACUTE CORONARY SYNDROME
     Dosage: PO
     Route: 048
     Dates: start: 20070112
  3. PLAVIX [Concomitant]
  4. ASPIRIN [Concomitant]
  5. METOPROLOL [Concomitant]

REACTIONS (1)
  - COLON CANCER STAGE III [None]
